FAERS Safety Report 5741317-8 (Version None)
Quarter: 2008Q2

REPORT INFORMATION
  Report Type: 
  Country: None (occurrence: None)
  Receive Date: 20080515
  Receipt Date: 20080506
  Transmission Date: 20081010
  Serious: Yes (Hospitalization)
  Sender: FDA-Public Use
  Company Number: WAES 0803USA03145

PATIENT
  Age: 71 Year
  Sex: Female
  Weight: 68.9467 kg

DRUGS (24)
  1. CAP VORINOSTAT [Suspect]
     Indication: ACUTE MYELOID LEUKAEMIA
     Dosage: 400 MG/DAILY/PO
     Route: 048
     Dates: start: 20080313, end: 20080326
  2. DOXYCYCLINE [Suspect]
     Indication: ROSACEA
     Dosage: 50 MG/BID/PO
     Route: 048
     Dates: start: 20080307, end: 20080317
  3. GEMFIBROZIL [Suspect]
     Indication: HYPERLIPIDAEMIA
     Dosage: 600 MG/BID/PO
     Route: 048
     Dates: start: 20070301, end: 20080317
  4. DECITABINE INFUSION  (FORM) [Suspect]
     Indication: ACUTE MYELOID LEUKAEMIA
     Dosage: 35 MG/DAILY/IV
     Route: 042
     Dates: start: 20080308, end: 20080312
  5. DECITABINE INFUSION  (FORM) [Suspect]
     Indication: MYELODYSPLASTIC SYNDROME
     Dosage: 35 MG/DAILY/IV
     Route: 042
     Dates: start: 20080308, end: 20080312
  6. DECITABINE INFUSION  (FORM) [Suspect]
     Indication: ACUTE MYELOID LEUKAEMIA
     Dosage: 35 MG/DAILY/IV
     Route: 042
     Dates: start: 20080405, end: 20080409
  7. DECITABINE INFUSION  (FORM) [Suspect]
     Indication: MYELODYSPLASTIC SYNDROME
     Dosage: 35 MG/DAILY/IV
     Route: 042
     Dates: start: 20080405, end: 20080409
  8. BISOPROLOL FUMARATE/HCTZ [Suspect]
     Indication: HYPERTENSION
     Dosage: 2.6 MG/DAILY/PO
     Route: 048
     Dates: start: 20080301, end: 20080317
  9. AVELOX [Suspect]
     Indication: ANTIBIOTIC PROPHYLAXIS
     Dosage: 400 MG/DAILY/PO
     Route: 048
     Dates: start: 20080314, end: 20080317
  10. LOTEMAX [Concomitant]
  11. ACETAMINOPHEN [Concomitant]
  12. ALLOPURINOL [Concomitant]
  13. CALCIUM (UNSPECIFIED) (+) VITAMI [Concomitant]
  14. DIPHENHYDRAMINE HYDROCHLORIDE [Concomitant]
  15. DOCUSATE SODIUM [Concomitant]
  16. HYDROXYUREA [Concomitant]
  17. LORAZEPAM [Concomitant]
  18. OMEGA - 3 MARINE TRIGLYCERIDES [Concomitant]
  19. OMEPRAZOLE [Concomitant]
  20. ONDANSETRON [Concomitant]
  21. OXYCODONE HCL [Concomitant]
  22. PAROXETINE HCL [Concomitant]
  23. POTASSIUM CHLORIDE [Concomitant]
  24. SENNOSIDES [Concomitant]

REACTIONS (7)
  - ASTHENIA [None]
  - BUNDLE BRANCH BLOCK RIGHT [None]
  - ELECTROCARDIOGRAM QT PROLONGED [None]
  - NAUSEA [None]
  - ORAL INTAKE REDUCED [None]
  - SYNCOPE VASOVAGAL [None]
  - VOMITING [None]
